FAERS Safety Report 7692950-8 (Version None)
Quarter: 2011Q3

REPORT INFORMATION
  Report Type: 
  Country: None (occurrence: None)
  Receive Date: 20110819
  Receipt Date: 20110811
  Transmission Date: 20111222
  Serious: Yes (Other)
  Sender: FDA-Public Use
  Company Number: KR-ASTELLAS-2011JP005595

PATIENT
  Age: 71 Year
  Sex: Male

DRUGS (3)
  1. SOLIFENACIN SUCCINATE [Suspect]
     Indication: NOCTURIA
  2. SOLIFENACIN SUCCINATE [Suspect]
     Indication: POLLAKIURIA
     Dosage: 5 MG, UNKNOWN/D
     Route: 048
     Dates: start: 20110627
  3. DESMOPRESSIN [Concomitant]
     Dosage: UNK
     Route: 065

REACTIONS (3)
  - DYSURIA [None]
  - DRY MOUTH [None]
  - CONSTIPATION [None]
